FAERS Safety Report 9832780 (Version 2)
Quarter: 2014Q1

REPORT INFORMATION
  Report Type: Report from Study
  Country: US (occurrence: US)
  Receive Date: 20140121
  Receipt Date: 20140206
  Transmission Date: 20141002
  Serious: Yes (Hospitalization)
  Sender: FDA-Public Use
  Company Number: US-BRISTOL-MYERS SQUIBB COMPANY-20007878

PATIENT
  Age: 46 Year
  Sex: Female
  Weight: 63.49 kg

DRUGS (7)
  1. ABATACEPT SUBQ INJECTION 125MG/ML [Suspect]
     Indication: RHEUMATOID ARTHRITIS
     Dosage: LAST INJ:9JAN2014?40MG
     Route: 058
     Dates: start: 200805
  2. METHOTREXATE [Suspect]
     Dates: start: 20121210
  3. SYNTHROID [Concomitant]
  4. HYDROCHLOROTHIAZIDE [Concomitant]
     Indication: HYPERTENSION
     Dates: start: 201310
  5. INDERAL [Concomitant]
     Indication: TACHYCARDIA
     Dosage: 40MG:OCT2013
  6. ZANTAC [Concomitant]
  7. BENADRYL [Concomitant]

REACTIONS (11)
  - Drug hypersensitivity [Unknown]
  - Food allergy [Unknown]
  - Injection site bruising [Unknown]
  - Hypertension [Unknown]
  - Fatigue [Unknown]
  - Head discomfort [Unknown]
  - Dyspnoea [Unknown]
  - Injection site mass [Unknown]
  - Injection site extravasation [Unknown]
  - Product quality issue [Unknown]
  - Injection site reaction [Unknown]
